FAERS Safety Report 16769749 (Version 3)
Quarter: 2019Q4

REPORT INFORMATION
  Report Type: Spontaneous
  Country: ES (occurrence: ES)
  Receive Date: 20190904
  Receipt Date: 20191001
  Transmission Date: 20200122
  Serious: Yes (Hospitalization, Other)
  Sender: FDA-Public Use
  Company Number: ES-ALEXION PHARMACEUTICALS INC.-A201913087

PATIENT
  Age: 53 Year
  Sex: Female

DRUGS (19)
  1. SOLIRIS [Suspect]
     Active Substance: ECULIZUMAB
     Indication: ATYPICAL HAEMOLYTIC URAEMIC SYNDROME
     Dosage: 900 MG, QW, FOR 4 WEEKS
     Route: 042
     Dates: start: 20171128
  2. PARIZAC                            /00661201/ [Concomitant]
     Indication: PRODUCT USED FOR UNKNOWN INDICATION
     Dosage: 20 MG, QD
     Route: 065
  3. PROGRAF [Concomitant]
     Active Substance: TACROLIMUS
     Indication: PRODUCT USED FOR UNKNOWN INDICATION
     Dosage: 2.5 MG, BID
     Route: 065
  4. CARDURAN NEO [Concomitant]
     Active Substance: DOXAZOSIN MESYLATE
     Indication: PRODUCT USED FOR UNKNOWN INDICATION
     Dosage: 8 MG, BID
     Route: 065
  5. MYFORTIC [Concomitant]
     Active Substance: MYCOPHENOLATE SODIUM
     Indication: PRODUCT USED FOR UNKNOWN INDICATION
     Dosage: 360 MG, BID
     Route: 065
     Dates: end: 20190913
  6. CARDYL [Concomitant]
     Active Substance: ATORVASTATIN CALCIUM
     Indication: PRODUCT USED FOR UNKNOWN INDICATION
     Dosage: 40 UNK, QD
     Route: 065
  7. PREDNISONE. [Concomitant]
     Active Substance: PREDNISONE
     Indication: PRODUCT USED FOR UNKNOWN INDICATION
     Dosage: 5 MG, QD
     Route: 065
  8. RELVAR ELLIPTA [Concomitant]
     Active Substance: FLUTICASONE FUROATE\VILANTEROL TRIFENATATE
     Indication: PRODUCT USED FOR UNKNOWN INDICATION
     Dosage: 1 INHALATION, QD
     Route: 065
  9. MAGNOGENE                          /00869201/ [Concomitant]
     Indication: PRODUCT USED FOR UNKNOWN INDICATION
     Dosage: 1 TABLET, QD
     Route: 065
  10. BISOPROLOL [Concomitant]
     Active Substance: BISOPROLOL
     Indication: PRODUCT USED FOR UNKNOWN INDICATION
     Dosage: 5 MG, BID
     Route: 065
  11. AMLODIPINE [Concomitant]
     Active Substance: AMLODIPINE BESYLATE
     Indication: PRODUCT USED FOR UNKNOWN INDICATION
     Dosage: 10 MG, QD
     Route: 065
  12. AMOXICILLIN. [Concomitant]
     Active Substance: AMOXICILLIN
     Indication: PRODUCT USED FOR UNKNOWN INDICATION
     Dosage: 250 MG, Q12H
     Route: 065
  13. SOLIRIS [Suspect]
     Active Substance: ECULIZUMAB
     Dosage: 1200 MG, EVERY 15 DAYS
     Route: 042
  14. ALDACTONE [Concomitant]
     Active Substance: SPIRONOLACTONE
     Indication: PRODUCT USED FOR UNKNOWN INDICATION
     Dosage: 25 MG, QD
     Route: 065
  15. TORASEMIDE [Concomitant]
     Active Substance: TORSEMIDE
     Indication: PRODUCT USED FOR UNKNOWN INDICATION
     Dosage: 5 MG, QD
     Route: 065
  16. ORFIDAL [Concomitant]
     Active Substance: LORAZEPAM
     Indication: INSOMNIA
     Dosage: 1 TABLET, AT NIGHT IF INSOMNIA OR ANXIETY
     Route: 065
  17. ORFIDAL [Concomitant]
     Active Substance: LORAZEPAM
     Indication: ANXIETY
  18. BRETARIS GENUAIR [Concomitant]
     Active Substance: ACLIDINIUM BROMIDE
     Indication: PRODUCT USED FOR UNKNOWN INDICATION
     Dosage: 1 INHALATION, BID
     Route: 065
  19. VENTOLIN [Concomitant]
     Active Substance: ALBUTEROL SULFATE
     Indication: DYSPNOEA
     Dosage: 2 INHALATIONS IF TIMELY DYSPNEA
     Route: 065

REACTIONS (27)
  - Blood urea increased [Unknown]
  - Blood creatinine increased [Unknown]
  - Glomerular filtration rate decreased [Unknown]
  - Red blood cell count decreased [Unknown]
  - Reticulocyte count increased [Unknown]
  - Blood immunoglobulin M decreased [Unknown]
  - Contusion [Unknown]
  - Immunoglobulins decreased [Unknown]
  - Haemorrhoids [Unknown]
  - Blood calcium decreased [Unknown]
  - Procalcitonin increased [Unknown]
  - Serum ferritin increased [Unknown]
  - Basophil count decreased [Unknown]
  - Proteus test positive [Recovered/Resolved]
  - Blood glucose increased [Unknown]
  - C-reactive protein increased [Unknown]
  - Thrombocytopenia [Unknown]
  - Blood uric acid increased [Unknown]
  - Lymphocyte count decreased [Unknown]
  - Eosinophil count decreased [Unknown]
  - Platelet count decreased [Recovered/Resolved]
  - Haemorrhoidal haemorrhage [Unknown]
  - Neutrophil count increased [Unknown]
  - Haemoglobin decreased [Unknown]
  - Blood sodium decreased [Unknown]
  - Platelet maturation arrest [Unknown]
  - Haematocrit decreased [Unknown]
